FAERS Safety Report 24359205 (Version 1)
Quarter: 2024Q3

REPORT INFORMATION
  Report Type: Spontaneous
  Country: CN (occurrence: CN)
  Receive Date: 20240924
  Receipt Date: 20240924
  Transmission Date: 20241017
  Serious: Yes (Other)
  Sender: MYLAN
  Company Number: CN-MYLANLABS-2024M1085954

PATIENT
  Age: 60 Year
  Sex: Male
  Weight: 72 kg

DRUGS (10)
  1. VENLAFAXINE HCL [Suspect]
     Active Substance: VENLAFAXINE HYDROCHLORIDE
     Indication: Phantom limb syndrome
     Dosage: 75 MILLIGRAM, PM(75 MG TAKEN AT DINNER)
     Route: 065
     Dates: start: 2021
  2. DOXORUBICIN HYDROCHLORIDE [Concomitant]
     Active Substance: DOXORUBICIN HYDROCHLORIDE
     Indication: Chemotherapy
     Dosage: UNK
     Route: 065
     Dates: start: 2021
  3. IFOSFAMIDE [Concomitant]
     Active Substance: IFOSFAMIDE
     Indication: Chemotherapy
     Dosage: UNK
     Route: 065
     Dates: start: 2021
  4. METHOTREXATE [Concomitant]
     Active Substance: METHOTREXATE
     Indication: Chemotherapy
     Dosage: UNK
     Route: 065
     Dates: start: 2021
  5. PARECOXIB SODIUM [Concomitant]
     Active Substance: PARECOXIB SODIUM
     Indication: Analgesic therapy
     Dosage: 40 MILLIGRAM, QD (ONCE A DAY FOR 3 DAYS)
     Route: 030
     Dates: start: 2021
  6. CELECOXIB [Concomitant]
     Active Substance: CELECOXIB
     Indication: Analgesic therapy
     Dosage: 0.2 GRAM, BID (0.2 G, ORAL, TWICE A DAY)
     Route: 048
     Dates: start: 2021
  7. PREGABALIN [Concomitant]
     Active Substance: PREGABALIN
     Indication: Phantom limb syndrome
     Dosage: 75 MILLIGRAM, BID (75 MG ORALLY TWICE DAILY)
     Route: 048
     Dates: start: 2021
  8. PREGABALIN [Concomitant]
     Active Substance: PREGABALIN
     Dosage: 150 MILLIGRAM, BID  (150 MG, ORALLY, TWICE A DAY)
     Route: 048
     Dates: start: 2021
  9. TRAMADOL [Concomitant]
     Active Substance: TRAMADOL\TRAMADOL HYDROCHLORIDE
     Indication: Analgesic therapy
     Dosage: 500 MILLIGRAM, Q2D (500 MILLIGRAM FOR 48 HOURS AFTER SURGERY)
     Route: 065
     Dates: start: 2021
  10. LORNOXICAM [Concomitant]
     Active Substance: LORNOXICAM
     Indication: Analgesic therapy
     Dosage: 16 MILLIGRAM, Q2D (16 MILLIGRAM FOR 48 HOURS AFTER SURGERY)
     Route: 065
     Dates: start: 2021

REACTIONS (2)
  - Urinary retention [Recovered/Resolved]
  - Off label use [Unknown]

NARRATIVE: CASE EVENT DATE: 20210101
